FAERS Safety Report 10879956 (Version 1)
Quarter: 2015Q1

REPORT INFORMATION
  Report Type: Spontaneous
  Country: US (occurrence: None)
  Receive Date: 20150224
  Receipt Date: 20150224
  Transmission Date: 20150721
  Serious: No
  Sender: FDA-Public Use
  Company Number: None

PATIENT
  Age: 51 Year
  Sex: Female

DRUGS (10)
  1. SIMVASTATIN. [Concomitant]
     Active Substance: SIMVASTATIN
  2. MTFORMIN [Concomitant]
  3. ATIVAN [Concomitant]
     Active Substance: LORAZEPAM
  4. METOPROLOL [Concomitant]
     Active Substance: METOPROLOL
  5. PREDNISONE. [Concomitant]
     Active Substance: PREDNISONE
  6. AFINITOR [Suspect]
     Active Substance: EVEROLIMUS
     Indication: BREAST CANCER
     Route: 048
  7. ZOFRAN [Concomitant]
     Active Substance: ONDANSETRON HYDROCHLORIDE
  8. LISIINOPRIL [Concomitant]
  9. HYDROCHOLORT [Concomitant]
  10. POTASSIUM [Concomitant]
     Active Substance: POTASSIUM

REACTIONS (1)
  - Stomatitis [None]
